FAERS Safety Report 18848378 (Version 1)
Quarter: 2021Q1

REPORT INFORMATION
  Report Type: Report from Study
  Country: BE (occurrence: BE)
  Receive Date: 20210204
  Receipt Date: 20210204
  Transmission Date: 20210419
  Serious: Yes (Hospitalization, Other)
  Sender: FDA-Public Use
  Company Number: BE-BAYER-2021-025569

PATIENT

DRUGS (1)
  1. LAROTRECTINIB [Suspect]
     Active Substance: LAROTRECTINIB

REACTIONS (7)
  - Skin burning sensation [Recovered/Resolved]
  - Dysgeusia [Not Recovered/Not Resolved]
  - Skin irritation [Recovered/Resolved]
  - Nausea [Recovered/Resolved]
  - Vomiting [Recovered/Resolved]
  - Diarrhoea [Recovered/Resolved]
  - Abdominal pain [None]
